FAERS Safety Report 7779656-1 (Version None)
Quarter: 2011Q3

REPORT INFORMATION
  Report Type: 
  Country: None (occurrence: None)
  Receive Date: 20110927
  Receipt Date: 20080801
  Transmission Date: 20111222
  Serious: Yes (Disabling, Other)
  Sender: FDA-Public Use
  Company Number: US-BAYER-US-2007-006397

PATIENT
  Age: 57 Year
  Sex: Female
  Weight: 68 kg

DRUGS (51)
  1. LEVOTHYROXINE SODIUM [Concomitant]
  2. NEXIUM [Concomitant]
  3. ALUMINUM HYDROXIDE AND MAGNESIUM TRISILICATE [Concomitant]
  4. FERROUS SULFATE TAB [Concomitant]
  5. THALIDOMIDE [Concomitant]
     Dosage: 50 MG, QD
     Dates: start: 20040825, end: 20041027
  6. MAGNEVIST [Suspect]
     Indication: ANGIOGRAM
     Dosage: UNK, 1 DOSE
     Route: 042
     Dates: start: 20020125, end: 20020125
  7. EPOETIN ALFA [Concomitant]
     Dosage: 8000 UNITS
     Route: 058
  8. THALIDOMIDE [Concomitant]
     Dosage: 50 MG, QD
     Dates: start: 20040802, end: 20040813
  9. RENAGEL [Concomitant]
     Dosage: 2400 MG, 3X/DAY
  10. LISINOPRIL [Concomitant]
     Dosage: UNK, UNK
     Dates: start: 20020122
  11. MYCOPHENOLATE MOFETIL [Concomitant]
     Dosage: UNK, UNK
     Dates: start: 20011001
  12. TORSEMIDE [Concomitant]
  13. CALCIUM CARBONATE [Concomitant]
  14. EPOETIN ALFA [Concomitant]
     Dosage: 4000 UNITS
     Route: 058
     Dates: start: 20021101
  15. FOLIC ACID [Concomitant]
  16. EPOGEN [Concomitant]
     Dosage: 10000 U, TIW
     Route: 010
  17. THALIDOMIDE [Concomitant]
     Dosage: 50 MG, QD
     Dates: start: 20031105, end: 20040707
  18. THALIDOMIDE [Concomitant]
     Dosage: 50 MG, QD
     Dates: start: 20050105, end: 20050401
  19. PREDNISONE [Concomitant]
  20. EPOETIN ALFA [Concomitant]
     Dosage: 10,000 UNITS BIW
     Route: 058
  21. EPOETIN ALFA [Concomitant]
     Dosage: 8000 UNITS
     Route: 058
  22. ALENDRONATE SODIUM [Concomitant]
  23. ROFECOXIB [Concomitant]
     Dosage: UNK, UNK
     Dates: start: 20030101
  24. RENAGEL [Concomitant]
     Dosage: 1600 MG, TID
     Route: 048
  25. MINOCYCLINE HCL [Concomitant]
  26. NEPHROCAPS [FOLIC ACID,VITAMINS NOS] [Concomitant]
  27. CLOTRIMAZOLE [Concomitant]
  28. TACROLIMUS [Concomitant]
     Dosage: UNK, UNK
     Dates: start: 20011001
  29. TYLENOL W/ CODEINE NO. 3 [Concomitant]
  30. PROGRAF [Concomitant]
     Dosage: 3 MG, BID
     Dates: start: 20011101
  31. MYCOPHENOLATE MOFETIL (CELLCEPT) [Concomitant]
     Dosage: 1000 MG, BID
     Dates: start: 20011101
  32. OMNISCAN [Suspect]
     Indication: NUCLEAR MAGNETIC RESONANCE IMAGING
     Dosage: 10CC
     Dates: start: 20020710, end: 20020710
  33. RENAGEL [Concomitant]
     Dosage: 1600 MG, 3X/DAY
     Route: 048
  34. EPOETIN ALFA [Concomitant]
     Dosage: 800 UNITS 3X/WEEK
  35. POLYSACCHARIDE-IRON COMPLEX [Concomitant]
  36. METOLAZONE [Concomitant]
  37. PYRIDOXINE HYDROCHLORIDE [Concomitant]
  38. CYANOCOBALAMIN [Concomitant]
  39. DARVOCET-N 50 [Concomitant]
     Dosage: UNK, UNK
     Dates: start: 20030101
  40. MIDODRINE HYDROCHLORIDE [Concomitant]
     Dosage: UNK, UNK
     Dates: start: 20040601
  41. MAGNEVIST [Suspect]
     Dosage: UNK, 1 DOSE
     Route: 042
     Dates: start: 20020612, end: 20020612
  42. OMNISCAN [Suspect]
     Indication: NUCLEAR MAGNETIC RESONANCE IMAGING BRAIN
     Dosage: 15CC
     Dates: start: 19990427, end: 19990427
  43. COUMADIN [Concomitant]
  44. EPOETIN ALFA [Concomitant]
     Dosage: 2000 UNITS
     Route: 058
  45. PREDNISONE [Concomitant]
  46. POTASSIUM CHLORIDE [Concomitant]
  47. VALGANCICLOVIR [Concomitant]
  48. L-CARNITINE [Concomitant]
     Dosage: AT DIALYSIS
  49. CALCIUM ACETATE [Concomitant]
  50. IOPROMIDE [Concomitant]
     Indication: ARTERIOGRAM CORONARY
     Dosage: 90 ML, 1 DOSE
     Dates: start: 20040618, end: 20040618
  51. EPOGEN [Concomitant]
     Dosage: 10000 U, BID
     Route: 058
     Dates: start: 20011101

REACTIONS (23)
  - FIBROSIS [None]
  - INJURY [None]
  - SCAR [None]
  - GAIT DISTURBANCE [None]
  - NEPHROGENIC SYSTEMIC FIBROSIS [None]
  - SKIN FIBROSIS [None]
  - QUALITY OF LIFE DECREASED [None]
  - JOINT CONTRACTURE [None]
  - GENERAL PHYSICAL HEALTH DETERIORATION [None]
  - WHEELCHAIR USER [None]
  - MOBILITY DECREASED [None]
  - EMOTIONAL DISTRESS [None]
  - HIP FRACTURE [None]
  - MYALGIA [None]
  - OEDEMA [None]
  - ANXIETY [None]
  - SKIN INDURATION [None]
  - SKIN EXFOLIATION [None]
  - SKIN TIGHTNESS [None]
  - PAIN IN EXTREMITY [None]
  - DRY SKIN [None]
  - SKIN HYPERPIGMENTATION [None]
  - PAIN [None]
